FAERS Safety Report 21550659 (Version 1)
Quarter: 2022Q4

REPORT INFORMATION
  Report Type: Spontaneous
  Country: RU (occurrence: RU)
  Receive Date: 20221103
  Receipt Date: 20221103
  Transmission Date: 20230112
  Serious: Yes (Other)
  Sender: FDA-Public Use
  Company Number: RU-BAYER-2022A140595

PATIENT
  Age: 31 Year
  Sex: Female
  Weight: 60 kg

DRUGS (1)
  1. KYLEENA [Suspect]
     Active Substance: LEVONORGESTREL
     Indication: Contraception
     Dosage: 17.5?G/DAY
     Route: 015
     Dates: start: 202205, end: 20220903

REACTIONS (8)
  - Haemorrhage urinary tract [None]
  - Device expulsion [Recovered/Resolved]
  - Ectropion of cervix [None]
  - Vaginal haemorrhage [None]
  - Abdominal pain lower [None]
  - Cervical cyst [None]
  - Varicose vein [None]
  - Adenomyosis [None]

NARRATIVE: CASE EVENT DATE: 20220825
